FAERS Safety Report 8960000 (Version 1)
Quarter: 2012Q4

REPORT INFORMATION
  Report Type: 
  Country: US (occurrence: US)
  Receive Date: 20121211
  Receipt Date: 20121211
  Transmission Date: 20130627
  Serious: No
  Sender: FDA-Public Use
  Company Number: US-009507513-1212USA002856

PATIENT
  Age: 58 Year
  Sex: Male

DRUGS (5)
  1. JANUVIA [Suspect]
     Indication: TYPE 2 DIABETES MELLITUS
     Dosage: UNK
     Route: 048
     Dates: start: 20121205
  2. METFORMIN [Concomitant]
  3. LISINOPRIL [Concomitant]
  4. ASPIRIN [Concomitant]
  5. OMEGA-3 MARINE TRIGLYCERIDES [Concomitant]

REACTIONS (5)
  - Nasal septal operation [Unknown]
  - Blood glucose increased [Unknown]
  - Infection [Unknown]
  - Stress [Unknown]
  - Sinusitis [Unknown]
